FAERS Safety Report 5380337-2 (Version None)
Quarter: 2007Q3

REPORT INFORMATION
  Report Type: 
  Country: None (occurrence: None)
  Receive Date: 20070706
  Receipt Date: 20070518
  Transmission Date: 20080115
  Serious: Yes (Other)
  Sender: FDA-Public Use
  Company Number: A0651963A

PATIENT
  Age: 52 Year
  Sex: Female

DRUGS (7)
  1. TYKERB [Suspect]
     Indication: BREAST CANCER
     Dosage: 5TAB PER DAY
     Route: 048
     Dates: start: 20070401
  2. XELODA [Concomitant]
  3. BROMFENAC SODIUM [Concomitant]
  4. ECONOPRED [Concomitant]
  5. LEXAPRO [Concomitant]
  6. DARVOCET [Concomitant]
  7. PREVACID [Concomitant]

REACTIONS (2)
  - DIARRHOEA [None]
  - PALMAR-PLANTAR ERYTHRODYSAESTHESIA SYNDROME [None]
